FAERS Safety Report 9732164 (Version 1)
Quarter: 2013Q4

REPORT INFORMATION
  Report Type: Spontaneous
  Country: FR (occurrence: FR)
  Receive Date: 20131205
  Receipt Date: 20131205
  Transmission Date: 20140711
  Serious: Yes (Life-Threatening, Hospitalization)
  Sender: FDA-Public Use
  Company Number: FR-SA-2013SA123545

PATIENT
  Age: 20 Year
  Sex: Female

DRUGS (13)
  1. STILNOX [Suspect]
     Indication: PRODUCT USED FOR UNKNOWN INDICATION
     Route: 048
     Dates: start: 201309
  2. DOLIPRANE [Suspect]
     Indication: PRODUCT USED FOR UNKNOWN INDICATION
     Dosage: STRENGTH: 1G
     Route: 048
     Dates: start: 201309
  3. TAZOCILLINE [Suspect]
     Indication: INFECTION
     Route: 042
     Dates: start: 20130914, end: 20130930
  4. VANCOMYCINE [Suspect]
     Indication: INFECTION
     Dosage: STRENGTH: 1.25 G
     Route: 042
  5. INEXIUM [Suspect]
     Indication: PRODUCT USED FOR UNKNOWN INDICATION
     Dosage: STRENGTH: 40 MG
     Route: 048
     Dates: start: 201309
  6. AUGMENTIN [Suspect]
     Indication: PRODUCT USED FOR UNKNOWN INDICATION
     Route: 065
     Dates: start: 20130907, end: 20130912
  7. ACUPAN [Suspect]
     Indication: PRODUCT USED FOR UNKNOWN INDICATION
     Route: 065
     Dates: start: 201309
  8. ACTISKENAN [Suspect]
     Indication: PRODUCT USED FOR UNKNOWN INDICATION
     Dosage: STRENGTH: 10 MG
     Route: 048
     Dates: start: 201309
  9. ATARAX [Suspect]
     Indication: PRODUCT USED FOR UNKNOWN INDICATION
     Dosage: STRENGTH: 25 MG
     Route: 048
     Dates: start: 201309
  10. HYPNOVEL [Concomitant]
     Indication: SEDATION
     Dates: start: 20130907, end: 20130912
  11. SUFENTANIL [Concomitant]
     Indication: SEDATION
     Dates: start: 20130907, end: 20130912
  12. NORADRENALINE [Concomitant]
     Dosage: DOSE: 0.375 GAMM/K/MIN
     Dates: start: 20130907, end: 20130910
  13. LOVENOX [Concomitant]
     Route: 058
     Dates: start: 201309

REACTIONS (6)
  - Drug reaction with eosinophilia and systemic symptoms [Recovering/Resolving]
  - Rash macular [Recovering/Resolving]
  - Pyrexia [Recovered/Resolved]
  - Lymphadenopathy [Recovering/Resolving]
  - Rash [Recovering/Resolving]
  - Eosinophil count increased [Recovered/Resolved]
